FAERS Safety Report 4418051-X (Version None)
Quarter: 2004Q3

REPORT INFORMATION
  Report Type: 
  Country: None (occurrence: None)
  Receive Date: 20040803
  Receipt Date: 20040721
  Transmission Date: 20050211
  Serious: Yes (Hospitalization)
  Sender: FDA-Public Use
  Company Number: S04-USA-03039-02

PATIENT
  Sex: Male
  Weight: 4.52 kg

DRUGS (4)
  1. CELEXA [Suspect]
     Indication: ANXIETY
     Dosage: 20 MG QD TRANSPLACENTAL
     Route: 064
     Dates: start: 20030701, end: 20040501
  2. CELEXA [Suspect]
     Indication: DEPRESSION
     Dosage: 20 MG QD TRANSPLACENTAL
     Route: 064
     Dates: start: 20030701, end: 20040501
  3. CELEXA (CITALOPRAM HYDROMBROMIDE) [Suspect]
     Indication: ANXIETY
     Dosage: 20 MG QD PO
     Route: 048
     Dates: start: 20040501
  4. CELEXA (CITALOPRAM HYDROMBROMIDE) [Suspect]
     Indication: DEPRESSION
     Dosage: 20 MG QD PO
     Route: 048
     Dates: start: 20040501

REACTIONS (6)
  - CLONUS [None]
  - DRUG EXPOSURE DURING PREGNANCY [None]
  - DRUG EXPOSURE VIA BREAST MILK [None]
  - NEONATAL DISORDER [None]
  - PYREXIA [None]
  - TREMOR NEONATAL [None]
